FAERS Safety Report 12199839 (Version 1)
Quarter: 2016Q1

REPORT INFORMATION
  Report Type: Spontaneous
  Country: US (occurrence: None)
  Receive Date: 20160321
  Receipt Date: 20160321
  Transmission Date: 20160526
  Serious: No
  Sender: FDA-Public Use
  Company Number: None

PATIENT
  Sex: Female

DRUGS (10)
  1. TRAMADOL. [Concomitant]
     Active Substance: TRAMADOL
  2. LORAZEPAM. [Concomitant]
     Active Substance: LORAZEPAM
  3. IBRANCE [Suspect]
     Active Substance: PALBOCICLIB
     Indication: BREAST CANCER
     Route: 048
     Dates: start: 20151218, end: 201603
  4. HYDROCO/APAP [Concomitant]
     Active Substance: ACETAMINOPHEN\HYDROCODONE
  5. MIRTAZAPINE. [Concomitant]
     Active Substance: MIRTAZAPINE
  6. NASONEX [Concomitant]
     Active Substance: MOMETASONE FUROATE
  7. PROLENSA [Concomitant]
     Active Substance: BROMFENAC SODIUM
  8. AMOXICILLIN. [Concomitant]
     Active Substance: AMOXICILLIN
  9. LETROZOLE. [Concomitant]
     Active Substance: LETROZOLE
  10. NEO/POLY/DEX [Concomitant]
     Active Substance: DEXAMETHASONE\NEOMYCIN\POLYMYXIN B SULFATE

REACTIONS (2)
  - Therapy cessation [None]
  - White blood cell count decreased [None]

NARRATIVE: CASE EVENT DATE: 2016
